FAERS Safety Report 14590689 (Version 1)
Quarter: 2018Q1

REPORT INFORMATION
  Report Type: Spontaneous
  Country: GB (occurrence: GB)
  Receive Date: 20180302
  Receipt Date: 20180302
  Transmission Date: 20180509
  Serious: Yes (Other)
  Sender: FDA-Public Use
  Company Number: GB-009507513-1802GBR013618

PATIENT
  Age: 1 Year
  Sex: Female
  Weight: 3.42 kg

DRUGS (2)
  1. VENTOLIN [Concomitant]
     Active Substance: ALBUTEROL SULFATE
     Dosage: 1-2 DAYS UP TO 4 TIMES A DAY; 100MICROGRAMS/DOSE ; AS NECESSARY
     Route: 055
     Dates: start: 20171123
  2. MONTELUKAST SODIUM. [Suspect]
     Active Substance: MONTELUKAST SODIUM
     Indication: COUGH
     Dosage: 1 DF, QD (NIGHT)
     Route: 048

REACTIONS (1)
  - Sleep terror [Recovered/Resolved]

NARRATIVE: CASE EVENT DATE: 20171107
